FAERS Safety Report 25510099 (Version 1)
Quarter: 2025Q3

REPORT INFORMATION
  Report Type: Spontaneous
  Country: US (occurrence: None)
  Receive Date: 20250702
  Receipt Date: 20250702
  Transmission Date: 20251020
  Serious: Yes (Life-Threatening, Hospitalization, Disabling, Other)
  Sender: FDA-CTU
  Company Number: None

PATIENT
  Age: 31 Year
  Sex: Male

DRUGS (2)
  1. ABILIFY [Suspect]
     Active Substance: ARIPIPRAZOLE
  2. RISPERIDONE [Suspect]
     Active Substance: RISPERIDONE

REACTIONS (9)
  - Brain injury [None]
  - Road traffic accident [None]
  - Headache [None]
  - Panic attack [None]
  - Hypoglycaemia [None]
  - Catatonia [None]
  - Paralysis [None]
  - Schizophrenia [None]
  - Screaming [None]
